FAERS Safety Report 4730346-9 (Version None)
Quarter: 2005Q3

REPORT INFORMATION
  Report Type: 
  Country: None (occurrence: None)
  Receive Date: 20050801
  Receipt Date: 20021002
  Transmission Date: 20060218
  Serious: Yes (Hospitalization, Disabling)
  Sender: FDA-Public Use
  Company Number: DE-MERCK-0210DEU00010

PATIENT
  Age: 72 Year
  Sex: Female
  Weight: 72 kg

DRUGS (11)
  1. VIOXX [Suspect]
     Indication: RHEUMATOID ARTHRITIS
     Route: 048
  2. VIOXX [Suspect]
     Route: 048
  3. VIOXX [Suspect]
     Indication: OSTEOPOROSIS
     Route: 048
  4. VIOXX [Suspect]
     Route: 048
  5. MORPHINE SULFATE [Concomitant]
     Route: 048
  6. MAGNESIUM (UNSPECIFIED) [Concomitant]
     Route: 048
  7. VERAPAMIL [Concomitant]
     Route: 048
  8. FUROSEMIDE SODIUM [Concomitant]
     Route: 048
  9. ENALAPRIL MALEATE [Concomitant]
     Route: 048
  10. TAMOXIFEN CITRATE [Concomitant]
     Route: 048
  11. POLYETHYLENE GLYCOL 3350 AND POTASSIUM CHLORIDE AND SODIUM BICARBONATE [Concomitant]
     Route: 048

REACTIONS (2)
  - RETINAL VEIN OCCLUSION [None]
  - VISUAL ACUITY REDUCED [None]
